FAERS Safety Report 9297924 (Version 2)
Quarter: 2013Q2

REPORT INFORMATION
  Report Type: Spontaneous
  Country: US (occurrence: US)
  Receive Date: 20130520
  Receipt Date: 20130527
  Transmission Date: 20140414
  Serious: Yes (Hospitalization)
  Sender: FDA-Public Use
  Company Number: US-PFIZER INC-2013154239

PATIENT
  Age: 34 Year
  Sex: Female
  Weight: 49.89 kg

DRUGS (6)
  1. NEURONTIN [Suspect]
     Indication: NEUROPATHY PERIPHERAL
     Dosage: 800 MG THREE OR FOUR TIMES A DAY
     Dates: start: 2006
  2. PROTONIX [Suspect]
     Indication: CROHN^S DISEASE
     Dosage: 40 MG, 2X/DAY
     Dates: start: 2005
  3. CARAFATE [Concomitant]
     Indication: CROHN^S DISEASE
     Dosage: UNK, 5X/DAY
  4. ZOFRAN [Concomitant]
     Indication: CROHN^S DISEASE
     Dosage: 8 MG, AS NEEDED
  5. PHENERGAN [Concomitant]
     Indication: CROHN^S DISEASE
     Dosage: 25 MG, EVERY 4 HRS
  6. CELEXA [Concomitant]
     Indication: DEPRESSION
     Dosage: 40 MG/DAY

REACTIONS (2)
  - Fallopian tube disorder [Unknown]
  - Drug dose omission [Unknown]
